FAERS Safety Report 24323083 (Version 1)
Quarter: 2024Q3

REPORT INFORMATION
  Report Type: Spontaneous
  Country: CA (occurrence: None)
  Receive Date: 20240914
  Receipt Date: 20240914
  Transmission Date: 20241017
  Serious: Yes (Other)
  Sender: Public
  Company Number: None

PATIENT
  Age: 29 Year
  Sex: Female
  Weight: 81 kg

DRUGS (1)
  1. ABILIFY [Suspect]
     Active Substance: ARIPIPRAZOLE

REACTIONS (8)
  - Hypersensitivity [None]
  - Fatigue [None]
  - Somnolence [None]
  - Weight increased [None]
  - Swelling [None]
  - Dizziness [None]
  - Asthenia [None]
  - Presyncope [None]

NARRATIVE: CASE EVENT DATE: 20240914
